FAERS Safety Report 22163944 (Version 1)
Quarter: 2023Q2

REPORT INFORMATION
  Report Type: Spontaneous
  Country: US (occurrence: US)
  Receive Date: 20230402
  Receipt Date: 20230402
  Transmission Date: 20230722
  Serious: No
  Sender: FDA-Public Use
  Company Number: US-drreddys-SPO/USA/23/0161680

PATIENT
  Age: 50 Year
  Sex: Female

DRUGS (1)
  1. ACCUTANE [Suspect]
     Active Substance: ISOTRETINOIN
     Indication: Product used for unknown indication
     Dates: start: 20230217, end: 20230218

REACTIONS (3)
  - Migraine [Unknown]
  - Dysstasia [Unknown]
  - Nausea [Unknown]

NARRATIVE: CASE EVENT DATE: 20230217
